FAERS Safety Report 21122573 (Version 1)
Quarter: 2022Q3

REPORT INFORMATION
  Report Type: Spontaneous
  Country: US (occurrence: US)
  Receive Date: 20220723
  Receipt Date: 20220723
  Transmission Date: 20221027
  Serious: Yes (Other)
  Sender: FDA-Public Use
  Company Number: US-ALEMBIC PHARMACUETICALS LIMITED-2022SCAL000327

PATIENT

DRUGS (1)
  1. CLONIDINE HYDROCHLORIDE [Suspect]
     Active Substance: CLONIDINE HYDROCHLORIDE
     Indication: Hypertension
     Dosage: 30 PILLS
     Route: 065

REACTIONS (5)
  - Cardiac failure acute [Unknown]
  - Left ventricular failure [Unknown]
  - Arteriospasm coronary [Unknown]
  - Troponin increased [Unknown]
  - Overdose [Unknown]
